FAERS Safety Report 24725236 (Version 1)
Quarter: 2024Q4

REPORT INFORMATION
  Report Type: Spontaneous
  Country: US (occurrence: US)
  Receive Date: 20241212
  Receipt Date: 20241212
  Transmission Date: 20250114
  Serious: No
  Sender: ALVOGEN
  Company Number: US-ALVOGEN-2024095654

PATIENT
  Sex: Female

DRUGS (2)
  1. LISDEXAMFETAMINE [Suspect]
     Active Substance: LISDEXAMFETAMINE
     Indication: Binge eating
     Dosage: STRENGTH: 70MG?EXPIRY DATE: 17-SEP-2025,?ALV, 568 BULE, AND ORANGE CAPSULE
     Dates: start: 2024
  2. OXYBUTYNIN [Concomitant]
     Active Substance: OXYBUTYNIN
     Indication: Product used for unknown indication
     Dates: start: 202409

REACTIONS (4)
  - Rash erythematous [Recovered/Resolved]
  - Rash pruritic [Recovered/Resolved]
  - Drug effect less than expected [Unknown]
  - Product odour abnormal [Unknown]

NARRATIVE: CASE EVENT DATE: 20240101
